FAERS Safety Report 8953901 (Version 2)
Quarter: 2013Q1

REPORT INFORMATION
  Report Type: Spontaneous
  Country: AU (occurrence: AU)
  Receive Date: 20121206
  Receipt Date: 20130109
  Transmission Date: 20140127
  Serious: Yes (Death, Life-Threatening, Hospitalization)
  Sender: FDA-Public Use
  Company Number: AU-B.I. PHARMACEUTICALS,INC./RIDGEFIELD-2012-AU-01951AU

PATIENT
  Age: 77 Year
  Sex: Female
  Weight: 116 kg

DRUGS (17)
  1. PRADAXA [Suspect]
     Indication: CEREBROVASCULAR ACCIDENT PROPHYLAXIS
     Dosage: 220 MG
     Dates: start: 20110704, end: 20121123
  2. PRADAXA [Suspect]
     Indication: ATRIAL FIBRILLATION
  3. AROPAX [Concomitant]
     Dosage: 20 MG
     Route: 048
  4. ASPIRIN [Concomitant]
     Dosage: 100 MG
     Route: 048
  5. BRICANYL [Concomitant]
     Dosage: TURBUHALER
     Route: 055
  6. CORTATE [Concomitant]
     Dosage: 30 MG
     Route: 048
  7. LIPITOR [Concomitant]
     Dosage: 40 MG
     Route: 048
  8. OMEPRAZOLE [Concomitant]
     Dosage: 20 MG
     Route: 048
  9. THYROXINE [Concomitant]
     Dosage: 85.7143 MCG
     Route: 048
  10. PANADOL OSTEO [Concomitant]
     Route: 048
  11. SOTALOL [Concomitant]
     Dosage: 240 MG
     Route: 048
  12. SYMBICORT [Concomitant]
     Dosage: 400MCG/12MCG
     Route: 055
  13. ANGININE [Concomitant]
     Route: 060
  14. DIAZEPAM [Concomitant]
     Indication: TREMOR
     Route: 048
  15. DIAZEPAM [Concomitant]
     Indication: ANXIETY
  16. PANAMAX [Concomitant]
     Route: 048
  17. SEREPAX [Concomitant]
     Route: 048

REACTIONS (10)
  - Cardio-respiratory arrest [Fatal]
  - Pancreatitis [Fatal]
  - Haematochezia [Fatal]
  - Syncope [Unknown]
  - Atrial fibrillation [Unknown]
  - Colitis [Unknown]
  - Abdominal pain [Unknown]
  - Nausea [Recovered/Resolved]
  - Vomiting [Recovered/Resolved]
  - Diarrhoea [Recovered/Resolved]
